FAERS Safety Report 16908093 (Version 4)
Quarter: 2021Q4

REPORT INFORMATION
  Report Type: Report from Study
  Country: BR (occurrence: BR)
  Receive Date: 20191011
  Receipt Date: 20211130
  Transmission Date: 20220303
  Serious: Yes (Other)
  Sender: FDA-Public Use
  Company Number: BR-TEVA-2019-BR-1117446

PATIENT
  Age: 33 Year
  Sex: Female

DRUGS (3)
  1. COPAXONE [Suspect]
     Active Substance: GLATIRAMER ACETATE
     Indication: Multiple sclerosis
     Route: 065
     Dates: start: 20170629
  2. DEVICE [Suspect]
     Active Substance: DEVICE
     Indication: Multiple sclerosis
     Dosage: AUTOJECT INJECTOR DEVICE
     Route: 065
  3. Sumax [Concomitant]
     Indication: Migraine

REACTIONS (16)
  - Closed globe injury [Unknown]
  - Anaphylactic shock [Recovered/Resolved]
  - Headache [Unknown]
  - Fatigue [Unknown]
  - Pain [Unknown]
  - Sinusitis [Unknown]
  - Swelling face [Recovered/Resolved]
  - Swelling [Recovered/Resolved]
  - Erythema [Recovered/Resolved]
  - Dyspnoea [Recovered/Resolved]
  - Dysgeusia [Recovered/Resolved]
  - Burning sensation [Recovered/Resolved]
  - Malaise [Recovered/Resolved]
  - Blood pressure increased [Recovered/Resolved]
  - Loss of personal independence in daily activities [Unknown]
  - Device issue [Unknown]

NARRATIVE: CASE EVENT DATE: 20190901
